FAERS Safety Report 14901648 (Version 1)
Quarter: 2018Q2

REPORT INFORMATION
  Report Type: Spontaneous
  Country: US (occurrence: US)
  Receive Date: 20180516
  Receipt Date: 20180516
  Transmission Date: 20180711
  Serious: No
  Sender: FDA-Public Use
  Company Number: US-ENDO PHARMACEUTICALS INC-2018-026735

PATIENT
  Age: 61 Year
  Sex: Female

DRUGS (3)
  1. GLYCOPYRROLATE                     /00196201/ [Concomitant]
     Active Substance: GLYCOPYRRONIUM
     Indication: GALLBLADDER OPERATION
     Dosage: 0.4 MG, UNK
     Dates: start: 20180404, end: 20180404
  2. NEOSTIGMINE METHYLSULFATE. [Suspect]
     Active Substance: NEOSTIGMINE METHYLSULFATE
     Indication: NEUROMUSCULAR BLOCKADE REVERSAL
     Dosage: 3 MG, UNKNOWN
     Route: 042
     Dates: start: 20180404, end: 20180404
  3. NEOSTIGMINE METHYLSULFATE. [Suspect]
     Active Substance: NEOSTIGMINE METHYLSULFATE
     Dosage: 2 MG, UNKNOWN
     Route: 042
     Dates: start: 20180404, end: 20180404

REACTIONS (2)
  - Tachycardia [Unknown]
  - Drug ineffective [Recovered/Resolved]

NARRATIVE: CASE EVENT DATE: 20180404
